APPROVED DRUG PRODUCT: PROSTIN E2
Active Ingredient: DINOPROSTONE
Strength: 20MG
Dosage Form/Route: SUPPOSITORY;VAGINAL
Application: N017810 | Product #001
Applicant: PFIZER INC
Approved: Approved Prior to Jan 1, 1982 | RLD: Yes | RS: No | Type: DISCN